FAERS Safety Report 4548310-1 (Version None)
Quarter: 2005Q1

REPORT INFORMATION
  Report Type: 
  Country: None (occurrence: None)
  Receive Date: 20050110
  Receipt Date: 20041210
  Transmission Date: 20050727
  Serious: Yes (Life-Threatening, Hospitalization, Disabling)
  Sender: FDA-Public Use
  Company Number: US-MERCK-0412USA01355

PATIENT
  Age: 77 Year
  Sex: Female
  Weight: 93 kg

DRUGS (7)
  1. VIOXX [Suspect]
     Indication: OSTEOARTHRITIS
     Route: 048
     Dates: end: 20041001
  2. VIOXX [Suspect]
     Indication: PAIN
     Route: 048
     Dates: end: 20041001
  3. VERAPAMIL [Concomitant]
     Indication: HYPERTENSION
     Route: 048
  4. DYAZIDE [Concomitant]
     Indication: HYPERTENSION
     Route: 048
  5. METOPROLOL [Concomitant]
     Indication: HYPERTENSION
     Route: 048
  6. LEXAPRO [Concomitant]
     Indication: DEPRESSION
     Route: 048
  7. TAMOXIFEN CITRATE [Concomitant]
     Indication: BREAST CANCER
     Route: 048

REACTIONS (3)
  - CYANOSIS [None]
  - MYOCARDIAL INFARCTION [None]
  - SKIN DISCOLOURATION [None]
